FAERS Safety Report 22517675 (Version 2)
Quarter: 2023Q2

REPORT INFORMATION
  Report Type: Report from Study
  Country: CO (occurrence: CO)
  Receive Date: 20230604
  Receipt Date: 20230626
  Transmission Date: 20230722
  Serious: No
  Sender: FDA-Public Use
  Company Number: CO-TAKEDA-2021TUS065527

PATIENT
  Age: 45 Year
  Sex: Female
  Weight: 53 kg

DRUGS (1)
  1. VEDOLIZUMAB [Suspect]
     Active Substance: VEDOLIZUMAB
     Indication: Colitis ulcerative
     Dosage: 300 MILLIGRAM
     Route: 042
     Dates: start: 20211019

REACTIONS (10)
  - Influenza [Unknown]
  - Cheilitis [Recovering/Resolving]
  - Oral herpes [Recovering/Resolving]
  - Dysuria [Recovered/Resolved]
  - Ear pain [Recovering/Resolving]
  - Ear infection [Recovering/Resolving]
  - Nasal congestion [Recovering/Resolving]
  - Nasopharyngitis [Recovering/Resolving]
  - Oropharyngeal pain [Recovering/Resolving]
  - Cough [Recovering/Resolving]

NARRATIVE: CASE EVENT DATE: 20211019
